FAERS Safety Report 6889996-6 (Version None)
Quarter: 2010Q3

REPORT INFORMATION
  Report Type: 
  Country: None (occurrence: None)
  Receive Date: 20100730
  Receipt Date: 20080701
  Transmission Date: 20110219
  Serious: No
  Sender: FDA-Public Use
  Company Number: US-PFIZER INC-2008055612

PATIENT
  Sex: Female
  Weight: 60.454 kg

DRUGS (2)
  1. LIPITOR [Suspect]
     Indication: BLOOD CHOLESTEROL INCREASED
     Dates: start: 20080303, end: 20080318
  2. LIPITOR [Suspect]
     Indication: CAROTID INTIMA-MEDIA THICKNESS INCREASED

REACTIONS (2)
  - AFFECT LABILITY [None]
  - DEPRESSION [None]
